FAERS Safety Report 8766258 (Version 2)
Quarter: 2015Q2

REPORT INFORMATION
  Report Type: Report from Study
  Country: US (occurrence: US)
  Receive Date: 20120904
  Receipt Date: 20150623
  Transmission Date: 20150821
  Serious: Yes (Death)
  Sender: FDA-Public Use
  Company Number: US-ROCHE-1113145

PATIENT
  Age: 68 Year
  Sex: Male

DRUGS (4)
  1. TYLENOL [Concomitant]
     Active Substance: ACETAMINOPHEN
     Route: 065
  2. AVASTIN [Suspect]
     Active Substance: BEVACIZUMAB
     Indication: RENAL CANCER
     Route: 065
     Dates: start: 200507
  3. TARCEVA [Suspect]
     Active Substance: ERLOTINIB HYDROCHLORIDE
     Indication: RENAL CANCER
     Route: 065
     Dates: start: 200507
  4. BENADRYL [Concomitant]
     Active Substance: DIPHENHYDRAMINE HYDROCHLORIDE
     Route: 065

REACTIONS (9)
  - Epistaxis [Unknown]
  - Death [Fatal]
  - Fatigue [Unknown]
  - Nausea [Unknown]
  - Stomatitis [Unknown]
  - Abdominal pain [Unknown]
  - Dyspnoea [Unknown]
  - Dyspepsia [Unknown]
  - Pain of skin [Unknown]

NARRATIVE: CASE EVENT DATE: 200606
